FAERS Safety Report 6479578-2 (Version None)
Quarter: 2009Q4

REPORT INFORMATION
  Report Type: 
  Country: None (occurrence: None)
  Receive Date: 20091208
  Receipt Date: 20091204
  Transmission Date: 20100525
  Serious: No
  Sender: FDA-Public Use
  Company Number: DE-JNJFOC-20091105034

PATIENT
  Age: 54 Year
  Sex: Male

DRUGS (4)
  1. DURAGESIC-100 [Suspect]
     Indication: RESTLESS LEGS SYNDROME
     Route: 062
  2. GABAPENTIN [Concomitant]
     Indication: RESTLESS LEGS SYNDROME
     Route: 065
  3. CARBAMAZEPINE [Concomitant]
     Indication: RESTLESS LEGS SYNDROME
     Route: 065
  4. DOPAMINE AGONISTS [Concomitant]
     Indication: RESTLESS LEGS SYNDROME
     Route: 065

REACTIONS (6)
  - DRUG DEPENDENCE [None]
  - DRUG EFFECT DECREASED [None]
  - DRUG INEFFECTIVE [None]
  - INAPPROPRIATE SCHEDULE OF DRUG ADMINISTRATION [None]
  - THERAPEUTIC RESPONSE DELAYED [None]
  - WRONG TECHNIQUE IN DRUG USAGE PROCESS [None]
